FAERS Safety Report 16610059 (Version 2)
Quarter: 2019Q4

REPORT INFORMATION
  Report Type: Report from Study
  Country: CA (occurrence: CA)
  Receive Date: 20190722
  Receipt Date: 20191025
  Transmission Date: 20200122
  Serious: Yes (Other)
  Sender: FDA-Public Use
  Company Number: CA-GLAXOSMITHKLINE-CA2019AMR129566

PATIENT
  Sex: Female

DRUGS (3)
  1. PREDNISONE. [Suspect]
     Active Substance: PREDNISONE
     Indication: PRODUCT USED FOR UNKNOWN INDICATION
     Dosage: 50 MG, QD
  2. MEPOLIZUMAB [Suspect]
     Active Substance: MEPOLIZUMAB
     Indication: ASTHMA
     Dosage: 100 MG, Z, 1 MONTHS
     Route: 042
     Dates: start: 20170413
  3. ADVAIR HFA [Suspect]
     Active Substance: FLUTICASONE PROPIONATE\SALMETEROL XINAFOATE
     Indication: PRODUCT USED FOR UNKNOWN INDICATION
     Dosage: 1 DF, BID 500/50 MCG 1 INHALATION
     Route: 055

REACTIONS (22)
  - Musculoskeletal pain [Unknown]
  - Pain [Unknown]
  - Insomnia [Unknown]
  - Loss of personal independence in daily activities [Recovering/Resolving]
  - Hypothalamic pituitary adrenal axis suppression [Unknown]
  - Migraine [Unknown]
  - Bronchitis [Unknown]
  - Anxiety [Unknown]
  - Malaise [Unknown]
  - Asthma [Recovering/Resolving]
  - Hormone level abnormal [Unknown]
  - Dyspnoea [Recovering/Resolving]
  - Wheezing [Recovering/Resolving]
  - Osteomyelitis [Unknown]
  - Multiple allergies [Unknown]
  - Stress [Unknown]
  - Menopausal symptoms [Unknown]
  - Feeling abnormal [Unknown]
  - Fatigue [Unknown]
  - Headache [Unknown]
  - Infection [Unknown]
  - Drug dependence [Unknown]
